FAERS Safety Report 5637500-2 (Version None)
Quarter: 2008Q1

REPORT INFORMATION
  Report Type: 
  Country: None (occurrence: None)
  Receive Date: 20080219
  Receipt Date: 20080204
  Transmission Date: 20080703
  Serious: Yes (Death)
  Sender: FDA-Public Use
  Company Number: 2008-01391

PATIENT
  Age: 60 Year
  Sex: Female

DRUGS (8)
  1. CARISOPRODOL [Suspect]
  2. AMLODIPINE BESYLATE [Suspect]
  3. DIAZEPAM [Suspect]
  4. OXYCODONE HCL AND ACETAMINOPHEN [Suspect]
  5. METHADONE HCL [Suspect]
  6. BENZODIAZEPINE DERIVATIVES [Suspect]
  7. ETHANOL(ETHANOL) [Suspect]
  8. OLMESARTAN MEDOXOMIL [Suspect]

REACTIONS (1)
  - CARDIO-RESPIRATORY ARREST [None]
